FAERS Safety Report 8614520-7 (Version None)
Quarter: 2012Q3

REPORT INFORMATION
  Report Type: 
  Country: None (occurrence: None)
  Receive Date: 20120823
  Receipt Date: 20120821
  Transmission Date: 20120928
  Serious: No
  Sender: FDA-Public Use
  Company Number: PHEH2012US011792

PATIENT
  Sex: Female

DRUGS (10)
  1. PLAVIX [Concomitant]
  2. TASIGNA [Suspect]
     Indication: SOFT TISSUE NEOPLASM
     Dosage: 400 MG, BID
     Route: 048
     Dates: start: 20120605
  3. LASIX [Concomitant]
  4. LEVOTHYROXINE SODIUM [Concomitant]
  5. SIMVASTATIN [Concomitant]
  6. TRAMADOL HCL [Concomitant]
  7. PRAVASTATIN [Concomitant]
  8. DIGOXIN [Concomitant]
  9. ACIDOPHILUS ^ZYMA^ [Concomitant]
  10. ASPIRIN [Concomitant]

REACTIONS (7)
  - LIP SWELLING [None]
  - FATIGUE [None]
  - SOMNOLENCE [None]
  - WEIGHT DECREASED [None]
  - HYPOAESTHESIA [None]
  - PARAESTHESIA [None]
  - ASTHENIA [None]
